FAERS Safety Report 14011703 (Version 1)
Quarter: 2017Q3

REPORT INFORMATION
  Report Type: Spontaneous
  Country: FR (occurrence: FR)
  Receive Date: 20170926
  Receipt Date: 20170926
  Transmission Date: 20171128
  Serious: Yes (Hospitalization)
  Sender: FDA-Public Use
  Company Number: FR-SEPTODONT-201704255

PATIENT
  Age: 68 Year
  Sex: Female

DRUGS (7)
  1. DELTAZINE 40 MG/ML ADR?NALIN?E AU 1/200.000 [Suspect]
     Active Substance: ARTICAINE\EPINEPHRINE
     Indication: LOCAL ANAESTHESIA
     Dosage: 1/4 CARTRIGE INJECTED WITH SPIX SPINE
     Route: 004
     Dates: start: 20150511, end: 20150511
  2. DELURSAN 500 MG, COMPRIM? PELLICUL? S?CABLE [Concomitant]
     Dosage: 1/0/1
  3. DICETEL 50 MG, COMPRIM? PELLICUL? [Concomitant]
     Dosage: 1/0/1
  4. DOLIPRANE 1G [Concomitant]
     Dosage: IN CASE OF PAIN
  5. ATARAX 25 MG, COMPRIM? PELLICUL? S?CABLE [Concomitant]
     Dosage: 0.5 TO 1 TABLET PER DAY BEFORE THE NIGHT
  6. RAMIPRIL. [Concomitant]
     Active Substance: RAMIPRIL
     Dosage: 1/0/0
  7. INEXIUM 20 MG, COMPRIM? GASTRO-R?SISTANT [Concomitant]
     Dosage: 1/0/0

REACTIONS (6)
  - Malaise [Recovered/Resolved]
  - Asthenia [Recovered/Resolved]
  - Hypersensitivity [Recovered/Resolved]
  - Hyperhidrosis [Recovered/Resolved]
  - Vomiting [Recovered/Resolved]
  - Tachycardia [Recovered/Resolved]

NARRATIVE: CASE EVENT DATE: 20150511
